FAERS Safety Report 11475293 (Version 1)
Quarter: 2015Q3

REPORT INFORMATION
  Report Type: Spontaneous
  Country: US (occurrence: None)
  Receive Date: 20150908
  Receipt Date: 20150908
  Transmission Date: 20151125
  Serious: Yes (Life-Threatening)
  Sender: FDA-Public Use
  Company Number: None

PATIENT
  Age: 66 Year
  Sex: Female
  Weight: 53.52 kg

DRUGS (1)
  1. DALIRESP [Suspect]
     Active Substance: ROFLUMILAST
     Indication: CHRONIC OBSTRUCTIVE PULMONARY DISEASE
     Dosage: 1 PILL
     Route: 048
     Dates: start: 20140902, end: 20150905

REACTIONS (7)
  - Tachycardia [None]
  - Colitis [None]
  - Muscle spasms [None]
  - Back pain [None]
  - Weight decreased [None]
  - Early satiety [None]
  - Depression [None]

NARRATIVE: CASE EVENT DATE: 20150904
